FAERS Safety Report 8819150 (Version 1)
Quarter: 2012Q4

REPORT INFORMATION
  Report Type: 
  Country: US (occurrence: US)
  Receive Date: 20121001
  Receipt Date: 20121001
  Transmission Date: 20130627
  Serious: No
  Sender: FDA-Public Use
  Company Number: US-PFIZER INC-2012242154

PATIENT
  Age: 78 Year
  Sex: Female
  Weight: 87.98 kg

DRUGS (1)
  1. LYRICA [Suspect]
     Indication: DIABETIC NEUROPATHY
     Dosage: 50 mg, 2x/day
     Route: 048
     Dates: start: 201209

REACTIONS (2)
  - Weight increased [Unknown]
  - Weight decreased [Unknown]
